FAERS Safety Report 14160516 (Version 1)
Quarter: 2017Q4

REPORT INFORMATION
  Report Type: Report from Study
  Country: None (occurrence: AU)
  Receive Date: 20171104
  Receipt Date: 20171104
  Transmission Date: 20180321
  Serious: Yes (Hospitalization)
  Sender: FDA-Public Use
  Company Number: AU-ABBVIE-17K-008-2146586-00

PATIENT
  Sex: Female

DRUGS (1)
  1. HUMIRA [Suspect]
     Active Substance: ADALIMUMAB
     Indication: RHEUMATOID ARTHRITIS
     Route: 058

REACTIONS (7)
  - Abdominal pain upper [Unknown]
  - Hiatus hernia [Unknown]
  - Post-traumatic headache [Unknown]
  - Scar [Unknown]
  - Head injury [Unknown]
  - Psychiatric symptom [Unknown]
  - Anxiety [Unknown]
